FAERS Safety Report 7427996-8 (Version None)
Quarter: 2011Q2

REPORT INFORMATION
  Report Type: 
  Country: None (occurrence: None)
  Receive Date: 20110418
  Receipt Date: 20110418
  Transmission Date: 20111010
  Serious: Yes (Life-Threatening, Disabling, Other)
  Sender: FDA-Public Use
  Company Number: None

PATIENT
  Age: 55 Year
  Sex: Female
  Weight: 90.7194 kg

DRUGS (2)
  1. BENICAR [Suspect]
     Indication: SARCOIDOSIS
  2. BENICAR [Suspect]
     Indication: FIBROMYALGIA

REACTIONS (2)
  - BLADDER DYSFUNCTION [None]
  - RENAL FAILURE [None]
